FAERS Safety Report 21390289 (Version 2)
Quarter: 2022Q4

REPORT INFORMATION
  Report Type: Spontaneous
  Country: CA (occurrence: CA)
  Receive Date: 20220929
  Receipt Date: 20221104
  Transmission Date: 20230113
  Serious: Yes (Other)
  Sender: FDA-Public Use
  Company Number: CA-CELLTRION INC.-2020CA035049

PATIENT

DRUGS (6)
  1. INFLECTRA [Suspect]
     Active Substance: INFLIXIMAB-DYYB
     Indication: Crohn^s disease
     Dosage: 5 MG/KG EVERY 6 WEEK
     Route: 042
     Dates: start: 20210312, end: 20211007
  2. INFLECTRA [Suspect]
     Active Substance: INFLIXIMAB-DYYB
     Dosage: 675 MG, EVERY 6 WEEK
     Route: 042
     Dates: start: 20211119
  3. INFLECTRA [Suspect]
     Active Substance: INFLIXIMAB-DYYB
     Dosage: 675 MG, EVERY 6 WEEK
     Route: 042
     Dates: start: 20220211
  4. INFLECTRA [Suspect]
     Active Substance: INFLIXIMAB-DYYB
     Dosage: 700 MG (SUPPOSED TO RECEIVE 675MG), EVERY 6 WEEKS
     Route: 042
     Dates: start: 20220728
  5. INFLECTRA [Suspect]
     Active Substance: INFLIXIMAB-DYYB
     Dosage: 700 MG (SUPPOSED TO RECEIVE 675MG), EVERY 6 WEEKS
     Route: 042
     Dates: start: 20220916
  6. IMURAN [Concomitant]
     Active Substance: AZATHIOPRINE
     Dosage: 50 MG (50 MG X3 TABS; FREQUENCY INFORMATION NOT AVAILABLE)
     Route: 065
     Dates: start: 2015

REACTIONS (7)
  - Ankle fracture [Unknown]
  - Dizziness [Recovered/Resolved]
  - Blood pressure systolic increased [Unknown]
  - Fall [Unknown]
  - Balance disorder [Unknown]
  - Off label use [Unknown]
  - Incorrect dose administered [Unknown]

NARRATIVE: CASE EVENT DATE: 20210314
